FAERS Safety Report 9169640 (Version 1)
Quarter: 2013Q1

REPORT INFORMATION
  Report Type: Spontaneous
  Country: US (occurrence: US)
  Receive Date: 20130318
  Receipt Date: 20130318
  Transmission Date: 20140127
  Serious: Yes (Hospitalization)
  Sender: FDA-Public Use
  Company Number: US-FRI-1000043444

PATIENT
  Age: 61 Year
  Sex: Female

DRUGS (14)
  1. LINZESS [Suspect]
     Indication: CONSTIPATION
     Dosage: 145 MCG
     Dates: start: 20130123, end: 20130307
  2. LINZESS [Suspect]
     Dosage: 290 MCG
  3. NASONEX [Suspect]
  4. ADVAIR [Concomitant]
  5. ALBUTEROL [Concomitant]
  6. CRESTOR [Concomitant]
  7. LEVOXYL [Concomitant]
  8. MOBIC [Concomitant]
  9. NEXIUM [Concomitant]
  10. SINGULAIR [Concomitant]
  11. TOPROL [Concomitant]
  12. AMITRIPTYLINE [Concomitant]
  13. DETROL [Concomitant]
  14. EXFORGE [Concomitant]

REACTIONS (1)
  - Faecaloma [Recovering/Resolving]
